FAERS Safety Report 4737100-2 (Version None)
Quarter: 2005Q3

REPORT INFORMATION
  Report Type: 
  Country: None (occurrence: None)
  Receive Date: 20050728
  Receipt Date: 20050525
  Transmission Date: 20060218
  Serious: No
  Sender: FDA-Public Use
  Company Number: 200515033US

PATIENT
  Age: 58 Year
  Sex: Female
  Weight: 50.9 kg

DRUGS (9)
  1. KETEK [Suspect]
     Indication: EAR INFECTION
     Dosage: 800 MG
     Dates: end: 20050524
  2. KETEK [Suspect]
     Indication: PHARYNGITIS
     Dosage: 800 MG
     Dates: end: 20050524
  3. ESTROGENS CONJUGATED (PREMARIN) [Concomitant]
  4. MONTELUKAST SODIUM [Concomitant]
  5. LORAZEPAM [Concomitant]
  6. VIOXX [Concomitant]
  7. HYDROCHLOROTHIAZIDE [Concomitant]
  8. VALSARTAN (DIOVAN HCT) [Concomitant]
  9. NEXIUM [Concomitant]

REACTIONS (6)
  - FATIGUE [None]
  - HEART RATE INCREASED [None]
  - INSOMNIA [None]
  - NAUSEA [None]
  - NIGHTMARE [None]
  - PALPITATIONS [None]
